FAERS Safety Report 6347922-2 (Version None)
Quarter: 2009Q3

REPORT INFORMATION
  Report Type: 
  Country: None (occurrence: None)
  Receive Date: 20090910
  Receipt Date: 20090831
  Transmission Date: 20100115
  Serious: Yes (Hospitalization)
  Sender: FDA-Public Use
  Company Number: PHHY2009KR38137

PATIENT
  Age: 56 Year
  Sex: Male

DRUGS (2)
  1. IMATINIB MESYLATE [Suspect]
     Indication: CHRONIC MYELOID LEUKAEMIA
     Dosage: 400 MG
     Route: 065
  2. PROTON PUMP INHIBITORS [Concomitant]
     Route: 065

REACTIONS (6)
  - GASTRECTOMY [None]
  - GASTROINTESTINAL ENDOSCOPIC THERAPY [None]
  - HAEMORRHAGE [None]
  - LYMPHADENECTOMY [None]
  - LYMPHADENOPATHY [None]
  - METASTASES TO LYMPH NODES [None]
